FAERS Safety Report 8854862 (Version 1)
Quarter: 2012Q4

REPORT INFORMATION
  Report Type: 
  Country: US (occurrence: US)
  Receive Date: 20121023
  Receipt Date: 20121023
  Transmission Date: 20130627
  Serious: No
  Sender: FDA-Public Use
  Company Number: US-PFIZER INC-2012259916

PATIENT
  Age: 55 Year
  Sex: Male
  Weight: 109 kg

DRUGS (1)
  1. VIAGRA [Suspect]
     Indication: ERECTILE DYSFUNCTION
     Dosage: 50 mg, single
     Dates: start: 20120906, end: 20120907

REACTIONS (1)
  - Migraine [Recovered/Resolved]
